FAERS Safety Report 9656711 (Version 2)
Quarter: 2013Q4

REPORT INFORMATION
  Report Type: Spontaneous
  Country: FR (occurrence: None)
  Receive Date: 20131028
  Receipt Date: 20131105
  Transmission Date: 20140711
  Serious: Yes (Other)
  Sender: FDA-Public Use
  Company Number: 2013FR002724

PATIENT
  Sex: 0

DRUGS (1)
  1. PONATINIB [Suspect]
     Indication: PRODUCT USED FOR UNKNOWN INDICATION
     Dosage: 45 MG, UNK, ORAL
     Route: 048

REACTIONS (1)
  - Deafness [None]
